FAERS Safety Report 18231619 (Version 1)
Quarter: 2020Q3

REPORT INFORMATION
  Report Type: Spontaneous
  Country: AT (occurrence: AT)
  Receive Date: 20200904
  Receipt Date: 20200904
  Transmission Date: 20201103
  Serious: Yes (Other)
  Sender: FDA-Public Use
  Company Number: AT-TEVA-2020-AT-1822608

PATIENT
  Age: 28 Year
  Sex: Female

DRUGS (1)
  1. IBUPROFEN. [Suspect]
     Active Substance: IBUPROFEN
     Dosage: 400 MG
     Dates: start: 20200103, end: 20200103

REACTIONS (4)
  - Rhinitis [Recovering/Resolving]
  - Ocular hyperaemia [Recovering/Resolving]
  - Type I hypersensitivity [Recovering/Resolving]
  - Nasal congestion [Recovering/Resolving]

NARRATIVE: CASE EVENT DATE: 20200103
